FAERS Safety Report 17648833 (Version 2)
Quarter: 2020Q2

REPORT INFORMATION
  Report Type: Spontaneous
  Country: US (occurrence: US)
  Receive Date: 20200409
  Receipt Date: 20200420
  Transmission Date: 20200713
  Serious: Yes (Other)
  Sender: FDA-Public Use
  Company Number: US-TEVA-2020-US-1218207

PATIENT
  Age: 4 Year
  Sex: Male

DRUGS (10)
  1. IMIPENEM AND CILASTATIN [Concomitant]
     Active Substance: CILASTATIN SODIUM\IMIPENEM
     Indication: MYCOBACTERIUM ABSCESSUS INFECTION
     Dosage: DIVIDED EVERY 8 HOURS
     Route: 042
  2. AMIKACIN. [Suspect]
     Active Substance: AMIKACIN
     Dosage: DOSING RANGED FROM 0.3 MG IN 1 VENTRICLE AND 0.4 MG IN THE OTHER TO 10 MG IN A SINGLE VENTRICLE.
     Route: 050
  3. CLARITHROMYCIN. [Concomitant]
     Active Substance: CLARITHROMYCIN
     Indication: MYCOBACTERIUM ABSCESSUS INFECTION
     Dosage: DIVIDED EVERY 12 HOURS
     Route: 048
  4. LINEZOLID. [Suspect]
     Active Substance: LINEZOLID
     Indication: MYCOBACTERIUM ABSCESSUS INFECTION
     Route: 042
  5. CLOFAZIMINE [Suspect]
     Active Substance: CLOFAZIMINE
     Indication: MYCOBACTERIUM ABSCESSUS INFECTION
     Dosage: 50 MILLIGRAM DAILY; 5 DAYS A WEEK
     Route: 048
  6. MEROPENEM. [Concomitant]
     Active Substance: MEROPENEM
     Indication: MYCOBACTERIUM ABSCESSUS INFECTION
     Route: 042
  7. LINEZOLID. [Suspect]
     Active Substance: LINEZOLID
     Dosage: VIA G-TUBE, ON OUTPATIENT THERAPY
     Route: 065
  8. TIGECYCLINE. [Suspect]
     Active Substance: TIGECYCLINE
     Indication: MYCOBACTERIUM ABSCESSUS INFECTION
     Route: 042
  9. AMIKACIN. [Suspect]
     Active Substance: AMIKACIN
     Indication: MYCOBACTERIUM ABSCESSUS INFECTION
     Dosage: 15 MG/KG DAILY;
     Route: 042
  10. CEFOXITIN [Concomitant]
     Active Substance: CEFOXITIN SODIUM
     Indication: MYCOBACTERIUM ABSCESSUS INFECTION
     Dosage: DIVIDED EVERY 8 HOURS
     Route: 042

REACTIONS (5)
  - Bone marrow failure [Unknown]
  - Off label use [Unknown]
  - Deafness neurosensory [Unknown]
  - Pancreatitis [Unknown]
  - Neutropenia [Unknown]
